FAERS Safety Report 19687854 (Version 1)
Quarter: 2021Q3

REPORT INFORMATION
  Report Type: Spontaneous
  Country: US (occurrence: US)
  Receive Date: 20210811
  Receipt Date: 20210811
  Transmission Date: 20211014
  Serious: No
  Sender: FDA-Public Use
  Company Number: US-PFIZER INC-2021547819

PATIENT
  Age: 75 Year
  Sex: Female
  Weight: 57.56 kg

DRUGS (1)
  1. IBRANCE [Suspect]
     Active Substance: PALBOCICLIB
     Indication: NEOPLASM MALIGNANT
     Dosage: 125 MG, CYCLIC (FOR 21 DAYS AND OFF 7 DAYS)
     Route: 048
     Dates: start: 202008

REACTIONS (1)
  - Eye disorder [Unknown]
